FAERS Safety Report 10744079 (Version 1)
Quarter: 2015Q1

REPORT INFORMATION
  Report Type: Spontaneous
  Country: JP (occurrence: JP)
  Receive Date: 20150128
  Receipt Date: 20150128
  Transmission Date: 20150721
  Serious: Yes (Other)
  Sender: FDA-Public Use
  Company Number: US-ASTRAZENECA-2015SE07829

PATIENT
  Age: 60 Year
  Sex: Female

DRUGS (6)
  1. FORXIGA [Suspect]
     Active Substance: DAPAGLIFLOZIN
     Indication: TYPE 2 DIABETES MELLITUS
     Route: 048
     Dates: start: 20141003, end: 20141127
  2. GLIMICRON [Concomitant]
     Active Substance: GLICLAZIDE
  3. JANUVIA [Concomitant]
     Active Substance: SITAGLIPTIN PHOSPHATE
  4. SEIBULE [Concomitant]
     Active Substance: MIGLITOL
  5. METGLUCO [Concomitant]
     Active Substance: METFORMIN HYDROCHLORIDE
  6. FORXIGA [Suspect]
     Active Substance: DAPAGLIFLOZIN
     Indication: TYPE 2 DIABETES MELLITUS
     Route: 048
     Dates: start: 20141128, end: 20141216

REACTIONS (3)
  - Beta haemolytic streptococcal infection [Recovered/Resolved]
  - Fungal infection [Recovered/Resolved]
  - Pruritus genital [Recovered/Resolved]

NARRATIVE: CASE EVENT DATE: 20141215
